FAERS Safety Report 6361683-2 (Version None)
Quarter: 2009Q3

REPORT INFORMATION
  Report Type: 
  Country: None (occurrence: None)
  Receive Date: 20090918
  Receipt Date: 20090917
  Transmission Date: 20100115
  Serious: No
  Sender: FDA-Public Use
  Company Number: US-B.I. PHARMACEUTICALS,INC./RIDGEFIELD-2009-BP-09668BP

PATIENT
  Sex: Female

DRUGS (5)
  1. MICARDIS HCT [Suspect]
     Indication: HYPERTENSION
     Dates: start: 20090801
  2. MICARDIS HCT [Suspect]
     Indication: HEADACHE
  3. EXCEDRIN [Concomitant]
     Indication: HEADACHE
  4. METOPROLOL TARTRATE [Concomitant]
  5. ALIGN PROBIOTIC SUPPLEMENT [Concomitant]

REACTIONS (2)
  - HYPOTENSION [None]
  - PULSE PRESSURE DECREASED [None]
